FAERS Safety Report 25324856 (Version 1)
Quarter: 2025Q2

REPORT INFORMATION
  Report Type: Spontaneous
  Country: JP (occurrence: JP)
  Receive Date: 20250516
  Receipt Date: 20250516
  Transmission Date: 20250717
  Serious: Yes (Death, Life-Threatening, Other)
  Sender: PFIZER
  Company Number: JP-PFIZER INC-202500100914

PATIENT
  Age: 69 Year
  Sex: Female

DRUGS (1)
  1. AZITHROMYCIN DIHYDRATE [Suspect]
     Active Substance: AZITHROMYCIN DIHYDRATE
     Indication: Pneumonia
     Dates: start: 20210813

REACTIONS (7)
  - Dyspnoea [Fatal]
  - Respiratory arrest [Fatal]
  - Mouth breathing [Fatal]
  - Therapeutic product effect incomplete [Unknown]
  - Oxygen saturation abnormal [Unknown]
  - Pneumonia [Unknown]
  - General physical health deterioration [Unknown]

NARRATIVE: CASE EVENT DATE: 20210801
